FAERS Safety Report 5532270-0 (Version None)
Quarter: 2007Q4

REPORT INFORMATION
  Report Type: 
  Country: None (occurrence: None)
  Receive Date: 20071203
  Receipt Date: 20071127
  Transmission Date: 20080405
  Serious: Yes (Other)
  Sender: FDA-Public Use
  Company Number: US-GENENTECH-247769

PATIENT

DRUGS (3)
  1. AVASTIN [Suspect]
     Indication: MACULAR DEGENERATION
     Dosage: 1.25 MG, Q2M
     Route: 031
     Dates: start: 20070911
  2. VIGAMOX [Concomitant]
     Indication: DRUG USE FOR UNKNOWN INDICATION
     Dosage: UNK GTT, QID X4 DAYS
  3. LIDOCAINE [Concomitant]
     Indication: PREMEDICATION

REACTIONS (3)
  - OCULAR VASCULAR DISORDER [None]
  - RETINAL HAEMORRHAGE [None]
  - UVEITIS [None]
